FAERS Safety Report 6045460-8 (Version None)
Quarter: 2009Q1

REPORT INFORMATION
  Report Type: 
  Country: None (occurrence: None)
  Receive Date: 20090121
  Receipt Date: 20090109
  Transmission Date: 20090719
  Serious: Yes (Other)
  Sender: FDA-Public Use
  Company Number: PHHO2007MX00882

PATIENT
  Age: 65 Year
  Sex: Female

DRUGS (2)
  1. ZELNORM [Suspect]
     Indication: IRRITABLE BOWEL SYNDROME
     Dosage: 6 MG, TID
     Route: 048
     Dates: start: 20061101, end: 20061201
  2. ZELNORM [Suspect]
     Dosage: 6MG PER DAY
     Route: 048
     Dates: start: 20071201, end: 20080101

REACTIONS (4)
  - APHASIA [None]
  - BRONCHITIS [None]
  - COUGH [None]
  - GASTRITIS [None]
